FAERS Safety Report 20309945 (Version 4)
Quarter: 2022Q4

REPORT INFORMATION
  Report Type: Spontaneous
  Country: US (occurrence: US)
  Receive Date: 20220107
  Receipt Date: 20221208
  Transmission Date: 20230112
  Serious: No
  Sender: FDA-Public Use
  Company Number: US-PFIZER INC-202101433023

PATIENT
  Age: 85 Year
  Sex: Female
  Weight: 66.68 kg

DRUGS (8)
  1. PREMARIN [Suspect]
     Active Substance: ESTROGENS, CONJUGATED
     Indication: Vaginal odour
     Dosage: 2-3 TIMES A WEEK DEPENDING ON CONDITION HALF INCH OR MORE ON FINGER APPLIED TO THE VAGINA
     Route: 067
     Dates: start: 202208
  2. VENTOLIN [Concomitant]
     Active Substance: ALBUTEROL SULFATE
     Indication: Chronic obstructive pulmonary disease
     Dosage: UNK (INHALER USED DAILY)
     Dates: start: 202103
  3. TRELEGY ELLIPTA [Concomitant]
     Active Substance: FLUTICASONE FUROATE\UMECLIDINIUM BROMIDE\VILANTEROL TRIFENATATE
     Indication: Chronic obstructive pulmonary disease
     Dosage: UNK (INHALER USED DAILY)
     Dates: start: 202103
  4. AZELASTINE [Concomitant]
     Active Substance: AZELASTINE
     Dosage: UNK UNK, DAILY
  5. FLUTICASONE [Concomitant]
     Active Substance: FLUTICASONE
     Dosage: UNK, DAILY
  6. CETIRIZINE [Concomitant]
     Active Substance: CETIRIZINE HYDROCHLORIDE
     Indication: Hypersensitivity
     Dosage: UNK, DAILY
  7. OMEPRAZOLE [Concomitant]
     Active Substance: OMEPRAZOLE
     Indication: Gastrooesophageal reflux disease
     Dosage: UNK, DAILY (START: DATE UNKNOWN OTHER THAN EASILY A COUPLE OF YEARS AGO)
  8. LEVOTHYROXINE [Concomitant]
     Active Substance: LEVOTHYROXINE
     Indication: Thyrotoxic crisis
     Dosage: UNK(ALTERNATING DAILY DOSE OF 88 AND 75 )
     Dates: start: 1993

REACTIONS (5)
  - Dysphonia [Unknown]
  - Product prescribing error [Unknown]
  - Off label use [Unknown]
  - Off label use [Unknown]
  - Wrong technique in product usage process [Unknown]
